FAERS Safety Report 5068544-X (Version None)
Quarter: 2006Q3

REPORT INFORMATION
  Report Type: 
  Country: None (occurrence: None)
  Receive Date: 20060802
  Receipt Date: 20051117
  Transmission Date: 20061208
  Serious: No
  Sender: FDA-Public Use
  Company Number: US-BRISTOL-MYERS SQUIBB COMPANY-13184460

PATIENT
  Age: 38 Year
  Sex: Female
  Weight: 54 kg

DRUGS (5)
  1. COUMADIN [Suspect]
     Indication: HEART DISEASE CONGENITAL
     Route: 048
  2. COUMADIN [Suspect]
     Indication: ATRIAL FLUTTER
     Route: 048
  3. LASIX [Concomitant]
  4. ALDACTONE [Concomitant]
  5. SOTALOL HCL [Concomitant]

REACTIONS (1)
  - ALOPECIA [None]
